FAERS Safety Report 21729783 (Version 2)
Quarter: 2023Q2

REPORT INFORMATION
  Report Type: Report from Study
  Country: US (occurrence: US)
  Receive Date: 20221214
  Receipt Date: 20230410
  Transmission Date: 20230722
  Serious: Yes (Other)
  Sender: FDA-Public Use
  Company Number: US-ABBVIE-4198585

PATIENT
  Sex: Female

DRUGS (2)
  1. HUMIRA [Suspect]
     Active Substance: ADALIMUMAB
     Indication: Colitis ulcerative
     Route: 058
     Dates: start: 20220526
  2. HUMIRA [Suspect]
     Active Substance: ADALIMUMAB
     Dosage: UPPED DOSE
     Route: 058

REACTIONS (6)
  - Precancerous lesion of digestive tract [Unknown]
  - Injection site bruising [Unknown]
  - Antibody test abnormal [Unknown]
  - Colitis [Recovering/Resolving]
  - Large intestine polyp [Unknown]
  - Drug specific antibody absent [Unknown]
